FAERS Safety Report 23044932 (Version 1)
Quarter: 2023Q4

REPORT INFORMATION
  Report Type: Spontaneous
  Country: LK (occurrence: LK)
  Receive Date: 20231009
  Receipt Date: 20231009
  Transmission Date: 20240110
  Serious: Yes (Other)
  Sender: FDA-Public Use
  Company Number: LK-ENDO PHARMACEUTICALS INC-2023-005146

PATIENT
  Age: 50 Year
  Sex: Male

DRUGS (1)
  1. BACLOFEN [Suspect]
     Active Substance: BACLOFEN
     Indication: Neck pain
     Dosage: 10 MILLIGRAM, TID
     Route: 065

REACTIONS (2)
  - Myoclonus [Recovered/Resolved]
  - Off label use [Recovered/Resolved]
